FAERS Safety Report 9952933 (Version 1)
Quarter: 2014Q1

REPORT INFORMATION
  Report Type: Spontaneous
  Country: US (occurrence: US)
  Receive Date: 20140304
  Receipt Date: 20140304
  Transmission Date: 20141002
  Serious: No
  Sender: FDA-Public Use
  Company Number: US-AMGEN-USASP2013067624

PATIENT
  Age: 50 Year
  Sex: Female
  Weight: 126.98 kg

DRUGS (8)
  1. ENBREL [Suspect]
     Indication: PRODUCT USED FOR UNKNOWN INDICATION
     Dosage: 50 MG, QWK
     Route: 058
  2. METHOTREXATE [Concomitant]
     Dosage: 2.5 MG, UNK
     Route: 065
  3. FOLIC ACID [Concomitant]
     Dosage: UNK
     Route: 065
  4. SALAGEN [Concomitant]
     Dosage: 5 MG, UNK
     Route: 065
  5. DICLOFENAC [Concomitant]
     Dosage: 100 MG, UNK
     Route: 065
  6. BENICAR [Concomitant]
     Dosage: 20 MG, UNK
     Route: 065
  7. HYDROCHLOROTH [Concomitant]
     Dosage: 12.5 MG, UNK
     Route: 065
  8. NEXIUM                             /01479303/ [Concomitant]
     Dosage: 20 MG, UNK
     Route: 065

REACTIONS (3)
  - Incorrect dose administered [Unknown]
  - Injection site swelling [Unknown]
  - Injection site pain [Unknown]
